FAERS Safety Report 7044581-0 (Version None)
Quarter: 2010Q3

REPORT INFORMATION
  Report Type: 
  Country: None (occurrence: None)
  Receive Date: 20100929
  Receipt Date: 20100713
  Transmission Date: 20110219
  Serious: No
  Sender: FDA-Public Use
  Company Number: US-WYE-H16195310

PATIENT
  Age: 55 Year
  Sex: Female
  Weight: 85.81 kg

DRUGS (4)
  1. PRISTIQ [Suspect]
     Indication: DEPRESSION
     Dosage: 50 MG 1X PER 1 DAY
     Dates: start: 20100710
  2. DARVOCET-N (DEXTROPROPOXYPHENE/PARACETAMOL) [Concomitant]
  3. AMBIEN [Concomitant]
  4. MIRAPEX [Concomitant]

REACTIONS (1)
  - SOMNOLENCE [None]
